FAERS Safety Report 10948674 (Version 1)
Quarter: 2015Q1

REPORT INFORMATION
  Report Type: Spontaneous
  Country: US (occurrence: None)
  Receive Date: 20150323
  Receipt Date: 20150323
  Transmission Date: 20150721
  Serious: Yes (Life-Threatening, Hospitalization, Disabling)
  Sender: FDA-Public Use
  Company Number: None

PATIENT
  Sex: Male
  Weight: 66.68 kg

DRUGS (6)
  1. ZIPRASIDONE HCL [Concomitant]
     Active Substance: ZIPRASIDONE HYDROCHLORIDE
  2. HALDOL [Suspect]
     Active Substance: HALOPERIDOL
     Indication: ACTIVITIES OF DAILY LIVING IMPAIRED
     Dosage: NEEDLES COULD HAVE BEEN HOW I CAUGHT HEPATITIS, DAY AND NIGHT, MOUTH AND INJECTION
     Dates: start: 1983, end: 2014
  3. VITAMIN B12 [Concomitant]
     Active Substance: CYANOCOBALAMIN
  4. HYDROXYZINE PAMOATE. [Concomitant]
     Active Substance: HYDROXYZINE PAMOATE
  5. CENTROID [Concomitant]
  6. BENZTROPINE MESYLATE. [Concomitant]
     Active Substance: BENZTROPINE MESYLATE

REACTIONS (3)
  - Unevaluable event [None]
  - Sexually transmitted disease [None]
  - Poisoning [None]

NARRATIVE: CASE EVENT DATE: 1971
